FAERS Safety Report 23442627 (Version 2)
Quarter: 2024Q1

REPORT INFORMATION
  Report Type: Spontaneous
  Country: ES (occurrence: ES)
  Receive Date: 20240125
  Receipt Date: 20240125
  Transmission Date: 20240410
  Serious: Yes (Other)
  Sender: FDA-Public Use
  Company Number: ES-ASTELLAS-2024US002031

PATIENT
  Age: 52 Year
  Sex: Male

DRUGS (3)
  1. TACROLIMUS [Suspect]
     Active Substance: TACROLIMUS
     Indication: Product used for unknown indication
     Dosage: UNK UNK, UNKNOWN FREQ.
     Route: 065
  2. CERTICAN [Concomitant]
     Active Substance: EVEROLIMUS
     Indication: Product used for unknown indication
     Dosage: UNK UNK, UNKNOWN FREQ.
     Route: 065
  3. DEFLAZACORT [Concomitant]
     Active Substance: DEFLAZACORT
     Indication: Product used for unknown indication
     Dosage: UNK UNK, UNKNOWN FREQ.
     Route: 065

REACTIONS (17)
  - Pulmonary fibrosis [Unknown]
  - Condition aggravated [Unknown]
  - Squamous cell carcinoma of skin [Unknown]
  - Respiratory tract infection [Unknown]
  - Dyspnoea exertional [Unknown]
  - Renal impairment [Unknown]
  - Cough [Unknown]
  - Dyspnoea exertional [Unknown]
  - Lung disorder [Unknown]
  - Obliterative bronchiolitis [Unknown]
  - Gout [Unknown]
  - Respiratory tract infection [Unknown]
  - Dyspnoea [Unknown]
  - COVID-19 [Unknown]
  - Infectious pleural effusion [Unknown]
  - Pseudomonas infection [Unknown]
  - Pneumothorax [Unknown]

NARRATIVE: CASE EVENT DATE: 20200101
